FAERS Safety Report 6850363-2 (Version None)
Quarter: 2010Q3

REPORT INFORMATION
  Report Type: 
  Country: None (occurrence: None)
  Receive Date: 20100716
  Receipt Date: 20071124
  Transmission Date: 20110219
  Serious: No
  Sender: FDA-Public Use
  Company Number: US-PFIZER INC-2007087465

PATIENT
  Sex: Female
  Weight: 88.6 kg

DRUGS (12)
  1. CHANTIX [Suspect]
     Indication: SMOKING CESSATION THERAPY
     Route: 048
     Dates: start: 20070913
  2. OMEPRAZOLE [Concomitant]
  3. PREMARIN [Concomitant]
  4. REQUIP [Concomitant]
  5. METOPROLOL [Concomitant]
  6. LEVOTHYROXINE SODIUM [Concomitant]
  7. ZETIA [Concomitant]
  8. LYRICA [Concomitant]
  9. EFFEXOR [Concomitant]
  10. KLONOPIN [Concomitant]
  11. TRICOR [Concomitant]
  12. CHLORZOXAZONE [Concomitant]

REACTIONS (4)
  - DRUG DOSE OMISSION [None]
  - MIGRAINE [None]
  - NIGHTMARE [None]
  - WEIGHT INCREASED [None]
